FAERS Safety Report 5775422-7 (Version None)
Quarter: 2008Q2

REPORT INFORMATION
  Report Type: 
  Country: None (occurrence: None)
  Receive Date: 20080612
  Receipt Date: 20080605
  Transmission Date: 20081010
  Serious: Yes (Other)
  Sender: FDA-Public Use
  Company Number: 2008GR_BP0326

PATIENT
  Age: 52 Year
  Sex: Male

DRUGS (1)
  1. TERBINAFINE 250 MG TABLET(TERBINAFINE) [Suspect]
     Indication: ONYCHOMYCOSIS
     Dosage: 250 MG (250 MG,1 IN 1 D), ORAL
     Route: 048
     Dates: start: 20080412, end: 20080418

REACTIONS (1)
  - PANCREATITIS [None]
